FAERS Safety Report 9678005 (Version 1)
Quarter: 2013Q4

REPORT INFORMATION
  Report Type: Spontaneous
  Country: US (occurrence: US)
  Receive Date: 20131108
  Receipt Date: 20131108
  Transmission Date: 20140711
  Serious: Yes (Hospitalization)
  Sender: FDA-Public Use
  Company Number: US-BAYER-2013-135105

PATIENT
  Age: 44 Year
  Sex: Female
  Weight: 63.95 kg

DRUGS (6)
  1. YAZ [Suspect]
     Indication: MENOPAUSAL SYMPTOMS
     Dosage: UNK
     Dates: start: 20080911, end: 20081126
  2. YAZ [Suspect]
     Indication: MENSTRUAL DISORDER
  3. IBUPROFEN [Concomitant]
     Dosage: 600 MG, UNK
  4. VICODIN [Concomitant]
  5. MORPHINE [Concomitant]
  6. TYLENOL #3 [Concomitant]

REACTIONS (6)
  - Pulmonary embolism [None]
  - Dyspnoea [None]
  - Pain [None]
  - Fear [None]
  - Chest pain [None]
  - Anxiety [None]
